FAERS Safety Report 4619751-9 (Version None)
Quarter: 2005Q1

REPORT INFORMATION
  Report Type: 
  Country: None (occurrence: None)
  Receive Date: 20050325
  Receipt Date: 20041217
  Transmission Date: 20050727
  Serious: Yes (Hospitalization, Other)
  Sender: FDA-Public Use
  Company Number: US-MERCK-0412USA02398

PATIENT
  Age: 80 Year
  Sex: Male
  Weight: 70 kg

DRUGS (13)
  1. VIOXX [Suspect]
     Indication: ARTHRITIS
     Route: 048
     Dates: start: 20010513, end: 20040727
  2. VIOXX [Suspect]
     Indication: ARTHRALGIA
     Route: 048
     Dates: start: 20010513, end: 20040727
  3. RANITIDINE [Concomitant]
     Route: 065
  4. HYTRIN [Concomitant]
     Route: 065
     Dates: start: 19990214
  5. PLENDIL [Concomitant]
     Route: 065
     Dates: end: 20021101
  6. LIPITOR [Concomitant]
     Route: 065
     Dates: start: 19991229
  7. GLUCOPHAGE [Concomitant]
     Route: 065
  8. PLAVIX [Concomitant]
     Route: 065
     Dates: start: 20021212, end: 20040130
  9. METOPROLOL [Concomitant]
     Route: 065
  10. NITROQUICK [Concomitant]
     Route: 065
  11. DIOVAN [Concomitant]
     Route: 065
     Dates: start: 20031104
  12. ZYRTEC [Concomitant]
     Route: 065
  13. DIUREX (HYDROCHLOROTHIAZIDE) [Concomitant]
     Route: 065

REACTIONS (4)
  - ADVERSE EVENT [None]
  - ANXIETY [None]
  - MYOCARDIAL INFARCTION [None]
  - OEDEMA PERIPHERAL [None]
